FAERS Safety Report 6731464-6 (Version None)
Quarter: 2010Q2

REPORT INFORMATION
  Report Type: 
  Country: None (occurrence: None)
  Receive Date: 20100519
  Receipt Date: 20100514
  Transmission Date: 20101027
  Serious: Yes (Hospitalization, Other)
  Sender: FDA-Public Use
  Company Number: US-BIOGENIDEC-2010BI015749

PATIENT
  Age: 52 Year
  Sex: Female

DRUGS (14)
  1. TYSABRI [Suspect]
     Indication: MULTIPLE SCLEROSIS
     Route: 042
     Dates: start: 20061116
  2. PROVIGIL [Concomitant]
     Route: 048
  3. MIRAPEX [Concomitant]
     Route: 048
  4. LYRICA [Concomitant]
     Route: 048
  5. LEXAPRO [Concomitant]
     Route: 048
  6. BACLOFEN [Concomitant]
     Indication: MUSCLE SPASMS
     Route: 048
  7. BACLOFEN [Concomitant]
     Route: 048
  8. ALLEGRA [Concomitant]
     Route: 048
  9. NEXIUM [Concomitant]
     Route: 048
  10. DOXAZOSIN MESYLATE [Concomitant]
     Route: 048
  11. COZAAR [Concomitant]
  12. NORCO [Concomitant]
     Indication: PAIN
     Route: 048
  13. COLACE [Concomitant]
     Route: 048
  14. ALBUTEROL [Concomitant]
     Indication: DYSPNOEA
     Route: 055

REACTIONS (4)
  - ANKLE FRACTURE [None]
  - HAEMOLYTIC ANAEMIA [None]
  - PULMONARY EMBOLISM [None]
  - SARCOIDOSIS [None]
